FAERS Safety Report 6858847-8 (Version None)
Quarter: 2010Q3

REPORT INFORMATION
  Report Type: 
  Country: None (occurrence: None)
  Receive Date: 20100719
  Receipt Date: 20080327
  Transmission Date: 20110219
  Serious: Yes (Other)
  Sender: FDA-Public Use
  Company Number: US-PFIZER INC-2008014316

PATIENT
  Sex: Female
  Weight: 64 kg

DRUGS (6)
  1. CHANTIX [Suspect]
     Indication: EX-TOBACCO USER
     Dates: start: 20071201
  2. ALPRAZOLAM [Concomitant]
  3. ABILIFY [Concomitant]
  4. SEROQUEL [Concomitant]
  5. LAMICTAL [Concomitant]
  6. LIPITOR [Concomitant]

REACTIONS (6)
  - BIPOLAR I DISORDER [None]
  - CRYING [None]
  - HEADACHE [None]
  - MALAISE [None]
  - NAUSEA [None]
  - SUICIDAL IDEATION [None]
